FAERS Safety Report 24421993 (Version 1)
Quarter: 2024Q4

REPORT INFORMATION
  Report Type: Spontaneous
  Country: US (occurrence: US)
  Receive Date: 20241010
  Receipt Date: 20241010
  Transmission Date: 20250115
  Serious: Yes (Death, Life-Threatening, Hospitalization, Other)
  Sender: PROCTER AND GAMBLE
  Company Number: US-MLMSERVICE-20240923-PI201723-00029-1

PATIENT
  Age: 44 Year
  Sex: Male

DRUGS (6)
  1. ACETAMINOPHEN [Suspect]
     Active Substance: ACETAMINOPHEN
     Dosage: UNK
  2. IBUPROFEN [Suspect]
     Active Substance: IBUPROFEN
     Dosage: UNK
  3. CEFTRIAXONE [Concomitant]
     Active Substance: CEFTRIAXONE
     Indication: Antibiotic therapy
  4. DOXYCYCLINE [Concomitant]
     Active Substance: DOXYCYCLINE
     Indication: Antibiotic therapy
  5. IVERMECTIN [Concomitant]
     Active Substance: IVERMECTIN
     Dosage: UNK
  6. SODIUM CHLORIDE [Concomitant]
     Active Substance: SODIUM CHLORIDE
     Dosage: UNK

REACTIONS (22)
  - Drug reaction with eosinophilia and systemic symptoms [Fatal]
  - Haemophagocytic lymphohistiocytosis [Fatal]
  - Hypotension [Fatal]
  - Tachycardia [Fatal]
  - Blood lactate dehydrogenase increased [Fatal]
  - Blood uric acid increased [Fatal]
  - International normalised ratio increased [Fatal]
  - Blood creatinine increased [Fatal]
  - Mental status changes [Fatal]
  - Rash maculo-papular [Fatal]
  - Hyperbilirubinaemia [Fatal]
  - Deep vein thrombosis [Fatal]
  - Sepsis [Fatal]
  - Pneumonia [Fatal]
  - Bacteraemia [Fatal]
  - Candida infection [Fatal]
  - Fungaemia [Fatal]
  - Overlap syndrome [Fatal]
  - Chorioretinitis [Fatal]
  - Multiple organ dysfunction syndrome [Fatal]
  - Septic shock [Fatal]
  - Cytokine storm [Fatal]
